FAERS Safety Report 7272402-X (Version None)
Quarter: 2011Q1

REPORT INFORMATION
  Report Type: 
  Country: None (occurrence: None)
  Receive Date: 20110203
  Receipt Date: 20101216
  Transmission Date: 20110831
  Serious: Yes (Hospitalization, Other)
  Sender: FDA-Public Use
  Company Number: US-BAYER-201018864NA

PATIENT
  Sex: Female
  Weight: 48.98 kg

DRUGS (7)
  1. AMBIEN [Concomitant]
     Dosage: UNK
     Dates: start: 20080527
  2. YASMIN [Suspect]
     Indication: PRODUCT USED FOR UNKNOWN INDICATION
     Route: 048
     Dates: start: 20040101, end: 20080501
  3. ZOFRAN [Concomitant]
     Indication: VOMITING
  4. KLOR-CON [Concomitant]
     Dosage: UNK
     Route: 048
     Dates: start: 20080528
  5. UNCODEABLE ^UNCLASSIFIABLE^ [Concomitant]
     Indication: PAIN
     Dosage: UNK
     Dates: start: 20080527
  6. ZOFRAN [Concomitant]
     Indication: NAUSEA
     Dosage: UNK
     Dates: start: 20080527
  7. DARVOCET-N 100 [Concomitant]
     Indication: PAIN
     Dosage: UNK
     Dates: start: 20080527

REACTIONS (4)
  - HEMIPARESIS [None]
  - HEMIANOPIA HOMONYMOUS [None]
  - CEREBROVASCULAR ACCIDENT [None]
  - NEGLECT OF PERSONAL APPEARANCE [None]
